FAERS Safety Report 13234635 (Version 1)
Quarter: 2017Q1

REPORT INFORMATION
  Report Type: Spontaneous
  Country: US (occurrence: US)
  Receive Date: 20170215
  Receipt Date: 20170215
  Transmission Date: 20170428
  Serious: No
  Sender: FDA-Public Use
  Company Number: US-PFIZER INC-2017067376

PATIENT
  Sex: Female
  Weight: 67 kg

DRUGS (3)
  1. VENLAFAXINE HCL [Suspect]
     Active Substance: VENLAFAXINE HYDROCHLORIDE
     Indication: ANXIETY
     Dosage: 37.5 MG, 1X/DAY
     Route: 048
  2. LEVOXYL [Concomitant]
     Active Substance: LEVOTHYROXINE SODIUM
     Indication: HYPOTHYROIDISM
     Dosage: 1 MG, UNK
  3. CLIMARA [Concomitant]
     Active Substance: ESTRADIOL
     Indication: BLOOD OESTROGEN
     Dosage: PATCH, SMALLEST DOSE, MAY BE 0.025

REACTIONS (1)
  - Vertigo [Recovered/Resolved]
